FAERS Safety Report 6263960-2 (Version None)
Quarter: 2009Q3

REPORT INFORMATION
  Report Type: 
  Country: None (occurrence: None)
  Receive Date: 20090710
  Receipt Date: 20090629
  Transmission Date: 20100115
  Serious: Yes (Hospitalization)
  Sender: FDA-Public Use
  Company Number: GB-ELI_LILLY_AND_COMPANY-GB200904001297

PATIENT
  Sex: Male
  Weight: 93 kg

DRUGS (6)
  1. HUMALOG MIX 50/50 [Suspect]
     Dosage: 20 IU, UNK
     Route: 058
     Dates: start: 20090205, end: 20090406
  2. HUMALOG MIX 50/50 [Suspect]
     Dosage: UNK, UNK
     Dates: start: 20090401
  3. FLUCONAZOLE [Concomitant]
     Dosage: 50 MG, UNK
     Route: 058
     Dates: start: 20090215
  4. SIMVASTATIN [Concomitant]
     Dosage: 20 MG, UNK
     Route: 048
  5. ESOMEPRAZOLE MAGNESIUM [Concomitant]
     Dosage: 20 MG, UNK
     Route: 048
  6. SHAM [Concomitant]
     Dosage: 50 MG, UNK

REACTIONS (6)
  - FACE OEDEMA [None]
  - FLUID RETENTION [None]
  - GENERALISED OEDEMA [None]
  - OEDEMA PERIPHERAL [None]
  - PRURITUS [None]
  - WEIGHT DECREASED [None]
